FAERS Safety Report 15737499 (Version 2)
Quarter: 2018Q4

REPORT INFORMATION
  Report Type: Report from Study
  Country: None (occurrence: BR)
  Receive Date: 20181218
  Receipt Date: 20181221
  Transmission Date: 20190205
  Serious: Yes (Other)
  Sender: FDA-Public Use
  Company Number: BR-ABBVIE-18K-020-2589454-00

PATIENT
  Sex: Male

DRUGS (1)
  1. HUMIRA [Suspect]
     Active Substance: ADALIMUMAB
     Indication: PSORIATIC ARTHROPATHY
     Route: 058
     Dates: start: 20161114

REACTIONS (6)
  - Dizziness [Unknown]
  - Weight increased [Unknown]
  - Memory impairment [Unknown]
  - Pain in extremity [Unknown]
  - Loss of consciousness [Unknown]
  - Peripheral swelling [Unknown]
